FAERS Safety Report 13757654 (Version 1)
Quarter: 2017Q3

REPORT INFORMATION
  Report Type: Spontaneous
  Country: FR (occurrence: FR)
  Receive Date: 20170717
  Receipt Date: 20170717
  Transmission Date: 20171127
  Serious: Yes (Life-Threatening, Hospitalization)
  Sender: FDA-Public Use
  Company Number: FR-ACCORD-053691

PATIENT
  Age: 43 Year
  Sex: Male

DRUGS (2)
  1. LEUCOVORIN. [Concomitant]
     Active Substance: LEUCOVORIN
     Indication: ADENOCARCINOMA OF COLON
     Dosage: FIRST CYCLE
     Dates: start: 20170609
  2. FLUOROURACIL ACCORD [Suspect]
     Active Substance: FLUOROURACIL
     Indication: ADENOCARCINOMA OF COLON
     Dosage: FIRST CYCLE?BOLUS OF 712 MG THEN A PERFUSION OF 4272 MG OVER 48 HOURS
     Route: 042
     Dates: start: 20170609, end: 20170610

REACTIONS (3)
  - Ejection fraction decreased [Recovering/Resolving]
  - Arteriospasm coronary [Recovering/Resolving]
  - Myocarditis [Recovering/Resolving]

NARRATIVE: CASE EVENT DATE: 20170610
